FAERS Safety Report 18840165 (Version 5)
Quarter: 2022Q3

REPORT INFORMATION
  Report Type: Report from Study
  Country: US (occurrence: US)
  Receive Date: 20210203
  Receipt Date: 20220906
  Transmission Date: 20221027
  Serious: Yes (Hospitalization, Other)
  Sender: FDA-Public Use
  Company Number: US-TAKEDA-US202030735

PATIENT
  Sex: Female

DRUGS (2)
  1. HUMAN IMMUNOGLOBULIN G [Suspect]
     Active Substance: HUMAN IMMUNOGLOBULIN G
     Indication: Primary immunodeficiency syndrome
     Dosage: 30 GRAM, Q2WEEKS
     Route: 065
  2. HUMAN IMMUNOGLOBULIN G [Suspect]
     Active Substance: HUMAN IMMUNOGLOBULIN G
     Indication: Primary immunodeficiency syndrome
     Dosage: 30 GRAM, Q2WEEKS
     Route: 065

REACTIONS (11)
  - Infection [Recovering/Resolving]
  - Nephrolithiasis [Unknown]
  - Ovarian cyst [Unknown]
  - Appendicitis [Unknown]
  - Sjogren^s syndrome [Unknown]
  - Biopsy [Unknown]
  - Vomiting [Unknown]
  - Chills [Unknown]
  - Fatigue [Unknown]
  - Nausea [Unknown]
  - Inappropriate schedule of product administration [Unknown]
